FAERS Safety Report 8059880-3 (Version None)
Quarter: 2012Q1

REPORT INFORMATION
  Report Type: 
  Country: None (occurrence: None)
  Receive Date: 20120120
  Receipt Date: 20120111
  Transmission Date: 20120608
  Serious: Yes (Other)
  Sender: FDA-Public Use
  Company Number: US-BAYER-2010-001003

PATIENT
  Sex: Female
  Weight: 53.061 kg

DRUGS (11)
  1. DIAZEPAM [Concomitant]
  2. HYDROCODONE BITARTRATE AND ACETAMINOPHEN [Concomitant]
  3. NASONEX [Concomitant]
     Dosage: 60 ?G, UNK
  4. NYSTATIN [Concomitant]
  5. WELLBUTRIN XL [Concomitant]
     Dosage: 300 MG, UNK
  6. CYMBALTA [Concomitant]
     Dosage: 20 MG, UNK
  7. PREVACID [Concomitant]
     Dosage: 30 MG, UNK
  8. SYNTHROID [Concomitant]
     Indication: HYPOTHYROIDISM
     Dosage: UNK
     Dates: start: 19840301
  9. YAZ [Suspect]
     Dosage: UNK
     Dates: start: 20080201, end: 20091001
  10. CEFACLOR [Concomitant]
     Dosage: 500 MG, UNK
  11. FLUCONAZOLE [Concomitant]
     Dosage: 150 MG, UNK

REACTIONS (3)
  - GALLBLADDER INJURY [None]
  - ADRENAL NEOPLASM [None]
  - GALLBLADDER DISORDER [None]
